FAERS Safety Report 5731102-5 (Version None)
Quarter: 2008Q2

REPORT INFORMATION
  Report Type: 
  Country: None (occurrence: None)
  Receive Date: 20080507
  Receipt Date: 20080501
  Transmission Date: 20081010
  Serious: Yes (Other)
  Sender: FDA-Public Use
  Company Number: GB-ALLERGAN-0805262US

PATIENT
  Age: 64 Year
  Sex: Female

DRUGS (5)
  1. EXOCIN [Suspect]
     Indication: CORNEAL ABSCESS
     Dosage: UNK, Q1HR
     Route: 047
  2. EXOCIN [Suspect]
     Dosage: UNK, QID
     Route: 047
  3. CEFUROXIME [Suspect]
     Indication: CORNEAL ABSCESS
     Dosage: UNK, Q1HR
     Route: 047
  4. PREDNISOLONE SODIUM PHOSPHATE [Suspect]
     Indication: POSTOPERATIVE CARE
     Dosage: UNK, BID
     Route: 047
  5. TIMOLOL MALEATE [Suspect]
     Indication: POSTOPERATIVE CARE
     Dosage: UNK, BID
     Route: 047

REACTIONS (3)
  - CORNEAL DEPOSITS [None]
  - CORNEAL EPITHELIUM DEFECT [None]
  - INTRAOCULAR PRESSURE INCREASED [None]
